FAERS Safety Report 5554864-9 (Version None)
Quarter: 2007Q4

REPORT INFORMATION
  Report Type: 
  Country: None (occurrence: None)
  Receive Date: 20071211
  Receipt Date: 20071128
  Transmission Date: 20080405
  Serious: Yes (Other)
  Sender: FDA-Public Use
  Company Number: 07122334

PATIENT
  Age: 53 Year
  Sex: Male

DRUGS (1)
  1. CLOMIPRAMINE HCL [Suspect]
     Dosage: ORAL
     Route: 048

REACTIONS (2)
  - PHARMACEUTICAL PRODUCT COMPLAINT [None]
  - THROAT IRRITATION [None]
